FAERS Safety Report 9511804 (Version 1)
Quarter: 2013Q1

REPORT INFORMATION
  Report Type: Spontaneous
  Country: US (occurrence: None)
  Receive Date: 20130305
  Receipt Date: 20130305
  Transmission Date: 20140127
  Serious: Yes (Other)
  Sender: FDA-Public Use
  Company Number: 163-21880-12103509

PATIENT
  Age: 75 Year
  Sex: Male

DRUGS (12)
  1. REVLIMID [Suspect]
     Indication: CHRONIC LYMPHOCYTIC LEUKAEMIA
     Dosage: 5 MG, 1 IN 1 D, PO
     Route: 048
     Dates: start: 20121005
  2. HYDROCHLOROTHIAZIDE (HYDROCHLOROTHIAZIDE) (UNKNOWN) [Concomitant]
  3. AMLODIPINE (AMLODIPINE) (UNKNOWN) [Concomitant]
  4. COLCHICINE (COLCHICINE) (UNKNOWN) [Concomitant]
  5. TERAZOSIN (TERAZOSIN) (UNKNOWN) [Concomitant]
  6. LOSARTAN (LOSARTAN) (UNKNOWN) [Concomitant]
  7. ATENOLOL (ATENOLOL) (25 MILLIGRAM, UNKNOWN) [Concomitant]
  8. ZANTAC (RANITIDINE HYDROCHLORIDE) [Concomitant]
  9. PRAVASTATIN (PRAVASTATIN) (UNKNOWN) [Concomitant]
  10. NAPROSYN (NAPROXEN) (125 MILLIGRAM, UNKNOWN) [Concomitant]
  11. MULTIVITAMINS (MULTIVITAMINS) (UNKNOWN) [Concomitant]
  12. ASPIRIN (ACETYLSALICYLIC ACID) (UNKNOWN) (ACETYLSALICYLIC ACID) [Concomitant]

REACTIONS (1)
  - Tumour flare [None]
